FAERS Safety Report 5444933-6 (Version None)
Quarter: 2007Q3

REPORT INFORMATION
  Report Type: 
  Country: None (occurrence: None)
  Receive Date: 20070906
  Receipt Date: 20070831
  Transmission Date: 20080115
  Serious: Yes (Hospitalization)
  Sender: FDA-Public Use
  Company Number: B0485928A

PATIENT
  Age: 87 Year
  Sex: Female

DRUGS (2)
  1. DIGOXIN [Suspect]
     Indication: ATRIAL FIBRILLATION
     Dosage: .25MG PER DAY
     Route: 048
     Dates: start: 20070101, end: 20070723
  2. ASPIRIN [Concomitant]
     Dosage: 100MG UNKNOWN
     Route: 048
     Dates: start: 20030101, end: 20070723

REACTIONS (2)
  - CARDIAC FAILURE [None]
  - DYSPNOEA [None]
